FAERS Safety Report 21303451 (Version 2)
Quarter: 2022Q3

REPORT INFORMATION
  Report Type: Spontaneous
  Country: DE (occurrence: DE)
  Receive Date: 20220907
  Receipt Date: 20220919
  Transmission Date: 20221027
  Serious: Yes (Life-Threatening, Hospitalization)
  Sender: FDA-Public Use
  Company Number: DE-TEVA-2022-DE-2070317

PATIENT
  Sex: Female

DRUGS (3)
  1. AMIODARONE [Interacting]
     Active Substance: AMIODARONE
     Indication: Supraventricular tachycardia
     Route: 050
  2. SIROLIMUS [Interacting]
     Active Substance: SIROLIMUS
     Indication: Rhabdomyoma
     Dosage: .8 MG/M2 DAILY;
     Route: 065
  3. SIROLIMUS [Interacting]
     Active Substance: SIROLIMUS
     Indication: Tuberous sclerosis complex

REACTIONS (3)
  - Drug level increased [Unknown]
  - Drug interaction [Unknown]
  - Off label use [Unknown]
